FAERS Safety Report 19067055 (Version 3)
Quarter: 2021Q2

REPORT INFORMATION
  Report Type: Spontaneous
  Country: US (occurrence: US)
  Receive Date: 20210329
  Receipt Date: 20210513
  Transmission Date: 20210717
  Serious: No
  Sender: FDA-Public Use
  Company Number: US-ORGANON-O2103USA002738

PATIENT
  Sex: Male

DRUGS (5)
  1. ASMANEX HFA [Suspect]
     Active Substance: MOMETASONE FUROATE
     Indication: ASTHMA
     Dosage: 2 PUFFS TWICE A DAY
     Dates: start: 202011
  2. ASMANEX HFA [Suspect]
     Active Substance: MOMETASONE FUROATE
     Indication: ASTHMA
     Dosage: 2 PUFFS TWICE A DAY
     Dates: start: 202011
  3. ASMANEX HFA [Suspect]
     Active Substance: MOMETASONE FUROATE
     Dosage: 2 PUFFS TWICE A DAY
  4. ASMANEX HFA [Suspect]
     Active Substance: MOMETASONE FUROATE
     Indication: ASTHMA
     Dosage: 2 PUFFS TWICE A DAY
     Dates: start: 2019
  5. ASMANEX HFA [Suspect]
     Active Substance: MOMETASONE FUROATE
     Dosage: 2 PUFFS TWICE A DAY
     Dates: start: 202011

REACTIONS (4)
  - Product use issue [Unknown]
  - Product administered to patient of inappropriate age [Unknown]
  - Product prescribing issue [Unknown]
  - Tic [Recovered/Resolved]

NARRATIVE: CASE EVENT DATE: 2019
